FAERS Safety Report 4759075-2 (Version None)
Quarter: 2005Q3

REPORT INFORMATION
  Report Type: 
  Country: None (occurrence: None)
  Receive Date: 20050826
  Receipt Date: 20050813
  Transmission Date: 20060218
  Serious: Yes (Hospitalization, Other)
  Sender: FDA-Public Use
  Company Number: 2005114461

PATIENT
  Sex: Female
  Weight: 99.7913 kg

DRUGS (15)
  1. NEURONTIN [Suspect]
     Indication: NEUROPATHY
     Dosage: UNKNOWN
     Route: 065
     Dates: start: 20030101, end: 20030101
  2. NEURONTIN [Suspect]
     Indication: NEUROPATHY
     Dosage: UNKNOWN
     Route: 065
     Dates: start: 20050701, end: 20050701
  3. DURAGESIC-100 [Suspect]
     Indication: PAIN
     Dosage: UNKNOWN (100 MG)
     Route: 065
     Dates: start: 20030101, end: 20030101
  4. DURAGESIC-100 [Suspect]
     Indication: PAIN
     Dosage: UNKNOWN (100 MG)
     Route: 065
     Dates: start: 20050701, end: 20050701
  5. LASIX [Concomitant]
  6. PROZAC [Concomitant]
  7. SYNTHROID [Concomitant]
  8. XANAX [Concomitant]
  9. CATAPRES [Concomitant]
  10. TOPROL (METOPROLOL) [Concomitant]
  11. LOTENSIN [Concomitant]
  12. NORVASC [Concomitant]
  13. ESTRACE [Concomitant]
  14. NEXIUM [Concomitant]
  15. ZAROXOLYN [Concomitant]

REACTIONS (11)
  - ABASIA [None]
  - AMNESIA [None]
  - BACK PAIN [None]
  - DRUG INEFFECTIVE [None]
  - DYSSTASIA [None]
  - FALL [None]
  - FEELING ABNORMAL [None]
  - HYPERSOMNIA [None]
  - MUSCULOSKELETAL STIFFNESS [None]
  - NAUSEA [None]
  - PAIN [None]
